FAERS Safety Report 14587243 (Version 1)
Quarter: 2018Q1

REPORT INFORMATION
  Report Type: Spontaneous
  Country: US (occurrence: US)
  Receive Date: 20180228
  Receipt Date: 20180228
  Transmission Date: 20180509
  Serious: Yes (Death)
  Sender: FDA-Public Use
  Company Number: None

PATIENT
  Age: 80 Year
  Sex: Female
  Weight: 81.9 kg

DRUGS (16)
  1. ARANESP [Concomitant]
     Active Substance: DARBEPOETIN ALFA
  2. TIZANIDINE. [Concomitant]
     Active Substance: TIZANIDINE
  3. PROCHLORPERAZINE. [Concomitant]
     Active Substance: PROCHLORPERAZINE
  4. TABLOID [Concomitant]
     Active Substance: THIOGUANINE
  5. FOLIC ACID. [Concomitant]
     Active Substance: FOLIC ACID
  6. VITAMIN C [Concomitant]
     Active Substance: ASCORBIC ACID
  7. NEXIUM [Concomitant]
     Active Substance: ESOMEPRAZOLE MAGNESIUM
  8. CYANOCOBALAMIN. [Concomitant]
     Active Substance: CYANOCOBALAMIN
  9. TOPROL XL [Concomitant]
     Active Substance: METOPROLOL SUCCINATE
  10. ASPIRIN. [Concomitant]
     Active Substance: ASPIRIN
  11. JADENU [Suspect]
     Active Substance: DEFERASIROX
     Indication: HAEMOCHROMATOSIS
     Route: 048
     Dates: start: 20170706, end: 20180227
  12. PROCRIT [Concomitant]
     Active Substance: ERYTHROPOIETIN
  13. BRILINTA [Concomitant]
     Active Substance: TICAGRELOR
  14. ZOLINZA [Concomitant]
     Active Substance: VORINOSTAT
  15. VITAMIN D [Concomitant]
     Active Substance: CHOLECALCIFEROL
  16. CRESTOR [Concomitant]
     Active Substance: ROSUVASTATIN CALCIUM

REACTIONS (1)
  - Disease progression [None]

NARRATIVE: CASE EVENT DATE: 20180227
